FAERS Safety Report 9682160 (Version 3)
Quarter: 2014Q1

REPORT INFORMATION
  Report Type: Spontaneous
  Country: FR (occurrence: FR)
  Receive Date: 20131111
  Receipt Date: 20140102
  Transmission Date: 20141002
  Serious: Yes (Other)
  Sender: FDA-Public Use
  Company Number: FR-RB-060325-13

PATIENT
  Sex: Male
  Weight: 102 kg

DRUGS (3)
  1. SUBOXONE TABLET [Suspect]
     Indication: DRUG WITHDRAWAL MAINTENANCE THERAPY
     Dosage: 2 DOSAGE FORMS DAILY
     Route: 045
     Dates: start: 201308, end: 2013
  2. AMLOR [Concomitant]
     Indication: PRODUCT USED FOR UNKNOWN INDICATION
     Dosage: DOSING DETAILS UNKNOWN
     Route: 065
  3. COOLMETEC [Concomitant]
     Indication: PRODUCT USED FOR UNKNOWN INDICATION
     Dosage: DOSING DETAILS UNKNOWN
     Route: 065

REACTIONS (2)
  - Intentional drug misuse [Recovered/Resolved]
  - Administration site infection [Recovered/Resolved]
